FAERS Safety Report 8983248 (Version 1)
Quarter: 2012Q4

REPORT INFORMATION
  Report Type: 
  Country: BR (occurrence: BR)
  Receive Date: 20121224
  Receipt Date: 20121224
  Transmission Date: 20130627
  Serious: Yes (Other)
  Sender: FDA-Public Use
  Company Number: PHHY2012BR118830

PATIENT
  Age: 33 Year
  Sex: Female
  Weight: 58 kg

DRUGS (4)
  1. GILENYA [Suspect]
     Indication: MULTIPLE SCLEROSIS
     Dosage: 0.5 mg, QD
     Dates: start: 20121004
  2. SERTRALINE [Concomitant]
     Dosage: 50 mg, UNK
     Dates: start: 2003
  3. TAMISA [Concomitant]
     Dosage: UNK UKN, UNK
     Dates: start: 201209
  4. ALPRAZOLAM [Concomitant]

REACTIONS (4)
  - Urinary retention [Unknown]
  - Urinary incontinence [Unknown]
  - Urinary tract disorder [Unknown]
  - Malaise [Unknown]
